FAERS Safety Report 8559447-4 (Version None)
Quarter: 2012Q3

REPORT INFORMATION
  Report Type: 
  Country: None (occurrence: None)
  Receive Date: 20120802
  Receipt Date: 20120731
  Transmission Date: 20120928
  Serious: No
  Sender: FDA-Public Use
  Company Number: US-BAYER-2012-077503

PATIENT
  Sex: Male

DRUGS (1)
  1. GADAVIST [Suspect]

REACTIONS (3)
  - TINNITUS [None]
  - CHEST DISCOMFORT [None]
  - INJECTION SITE WARMTH [None]
